FAERS Safety Report 4862986-0 (Version None)
Quarter: 2005Q4

REPORT INFORMATION
  Report Type: 
  Country: None (occurrence: None)
  Receive Date: 20051130
  Receipt Date: 20051028
  Transmission Date: 20060501
  Serious: No
  Sender: FDA-Public Use
  Company Number: FABR-11297

PATIENT
  Age: 29 Year
  Sex: Male
  Weight: 56 kg

DRUGS (4)
  1. FABRAZYME [Suspect]
     Indication: FABRY'S DISEASE
     Dosage: 0.25 MG/KG Q2WKS IV
     Route: 042
     Dates: start: 20050728
  2. FABRAZYME [Suspect]
     Indication: FABRY'S DISEASE
     Dosage: 1 MG/KG Q2WKS IV
     Route: 042
     Dates: start: 20040405, end: 20050701
  3. TEGRETOL [Concomitant]
  4. TELFAST [Concomitant]

REACTIONS (2)
  - CHILLS [None]
  - FATIGUE [None]
